FAERS Safety Report 25038490 (Version 1)
Quarter: 2025Q1

REPORT INFORMATION
  Report Type: Report from Study
  Country: CO (occurrence: CO)
  Receive Date: 20250304
  Receipt Date: 20250304
  Transmission Date: 20250408
  Serious: Yes (Hospitalization, Other)
  Sender: TAKEDA
  Company Number: CO-TAKEDA-2022TUS070601

PATIENT
  Age: 16 Year
  Sex: Female
  Weight: 48.98 kg

DRUGS (17)
  1. VELAGLUCERASE ALFA [Suspect]
     Active Substance: VELAGLUCERASE ALFA
     Indication: Gaucher^s disease type I
     Dosage: 3150 INTERNATIONAL UNIT, Q2WEEKS
     Dates: start: 20220114
  2. VELAGLUCERASE ALFA [Suspect]
     Active Substance: VELAGLUCERASE ALFA
     Indication: Gaucher^s disease
     Dosage: 3600 INTERNATIONAL UNIT, Q2WEEKS
     Dates: start: 20240430
  3. VELAGLUCERASE ALFA [Suspect]
     Active Substance: VELAGLUCERASE ALFA
     Dosage: 3600 INTERNATIONAL UNIT, Q2WEEKS
     Dates: start: 20240503, end: 20240503
  4. VELAGLUCERASE ALFA [Suspect]
     Active Substance: VELAGLUCERASE ALFA
     Dosage: 3420 INTERNATIONAL UNIT, 2/MONTH
     Dates: start: 20240618
  5. VELAGLUCERASE ALFA [Suspect]
     Active Substance: VELAGLUCERASE ALFA
     Dosage: 2760 INTERNATIONAL UNIT, Q2WEEKS
  6. VELAGLUCERASE ALFA [Suspect]
     Active Substance: VELAGLUCERASE ALFA
     Dosage: 2940 INTERNATIONAL UNIT, Q2WEEKS
  7. VELAGLUCERASE ALFA [Suspect]
     Active Substance: VELAGLUCERASE ALFA
     Dosage: 3200 INTERNATIONAL UNIT, Q2WEEKS
  8. VELAGLUCERASE ALFA [Suspect]
     Active Substance: VELAGLUCERASE ALFA
     Dosage: 3600 INTERNATIONAL UNIT, Q2WEEKS
  9. VELAGLUCERASE ALFA [Suspect]
     Active Substance: VELAGLUCERASE ALFA
     Dosage: 8.25 DOSAGE FORM, 2/MONTH
  10. VELAGLUCERASE ALFA [Suspect]
     Active Substance: VELAGLUCERASE ALFA
     Dosage: 3600 INTERNATIONAL UNIT, Q2WEEKS
  11. VELAGLUCERASE ALFA [Suspect]
     Active Substance: VELAGLUCERASE ALFA
     Dosage: 3420 INTERNATIONAL UNIT, 2/MONTH
  12. VELAGLUCERASE ALFA [Suspect]
     Active Substance: VELAGLUCERASE ALFA
     Dosage: 3600 INTERNATIONAL UNIT, Q2WEEKS
  13. VELAGLUCERASE ALFA [Suspect]
     Active Substance: VELAGLUCERASE ALFA
     Dosage: 3300 INTERNATIONAL UNIT, Q2WEEKS
  14. VELAGLUCERASE ALFA [Suspect]
     Active Substance: VELAGLUCERASE ALFA
     Dosage: 3420 INTERNATIONAL UNIT, 2/MONTH
  15. VELAGLUCERASE ALFA [Suspect]
     Active Substance: VELAGLUCERASE ALFA
  16. VELAGLUCERASE ALFA [Suspect]
     Active Substance: VELAGLUCERASE ALFA
     Dosage: 3420 INTERNATIONAL UNIT, 2/MONTH
  17. VELAGLUCERASE ALFA [Suspect]
     Active Substance: VELAGLUCERASE ALFA
     Dosage: UNK UNK, Q2WEEKS

REACTIONS (26)
  - Haemoglobin decreased [Unknown]
  - Abortion spontaneous [Unknown]
  - Breast feeding [Unknown]
  - Urinary tract infection [Not Recovered/Not Resolved]
  - Product availability issue [Unknown]
  - Inappropriate schedule of product administration [Unknown]
  - Malaise [Unknown]
  - Arthralgia [Unknown]
  - Product prescribing error [Unknown]
  - Viral infection [Recovering/Resolving]
  - Weight increased [Unknown]
  - Illness [Unknown]
  - Treatment noncompliance [Unknown]
  - Skin lesion [Not Recovered/Not Resolved]
  - Poor venous access [Recovering/Resolving]
  - Skin odour abnormal [Not Recovered/Not Resolved]
  - Pain [Unknown]
  - Stress at work [Unknown]
  - Influenza [Unknown]
  - Product distribution issue [Unknown]
  - Product dose omission issue [Unknown]
  - Pregnancy [Recovered/Resolved]
  - Dizziness [Recovered/Resolved]
  - Vomiting [Recovered/Resolved]
  - Pruritus [Not Recovered/Not Resolved]
  - Headache [Unknown]

NARRATIVE: CASE EVENT DATE: 20220914
